FAERS Safety Report 18490439 (Version 3)
Quarter: 2020Q4

REPORT INFORMATION
  Report Type: Spontaneous
  Country: FR (occurrence: FR)
  Receive Date: 20201111
  Receipt Date: 20201203
  Transmission Date: 20210114
  Serious: Yes (Hospitalization)
  Sender: FDA-Public Use
  Company Number: FR-JNJFOC-20201110669

PATIENT
  Age: 8 Year
  Sex: Male
  Weight: 29 kg

DRUGS (3)
  1. CETIRIZINE HYDROCHLORIDE. [Suspect]
     Active Substance: CETIRIZINE HYDROCHLORIDE
     Indication: TOXICITY TO VARIOUS AGENTS
     Dosage: IN TOTAL?5 TABLETS OF CETIRIZINE 5 MG
     Route: 048
     Dates: start: 20200819, end: 20200819
  2. MIRTAZAPINE. [Suspect]
     Active Substance: MIRTAZAPINE
     Indication: TOXICITY TO VARIOUS AGENTS
     Dosage: ; IN TOTAL?8 TABLETS OF MIRTAZAPINE 15 MG
     Route: 048
     Dates: start: 20200819, end: 20200819
  3. KETOPROFENE [Suspect]
     Active Substance: KETOPROFEN
     Indication: TOXICITY TO VARIOUS AGENTS
     Dosage: IN TOTAL 2 TABLETS OF KETOPROFEN 400 MG
     Route: 048
     Dates: start: 20200819, end: 20200819

REACTIONS (4)
  - Disorientation [Recovered/Resolved]
  - Somnolence [Recovered/Resolved]
  - Toxicity to various agents [Unknown]
  - Overdose [Unknown]

NARRATIVE: CASE EVENT DATE: 20200819
